FAERS Safety Report 9260423 (Version 1)
Quarter: 2013Q2

REPORT INFORMATION
  Report Type: Spontaneous
  Country: IN (occurrence: IN)
  Receive Date: 20130429
  Receipt Date: 20130429
  Transmission Date: 20140414
  Serious: Yes (Death)
  Sender: FDA-Public Use
  Company Number: IN-ASTELLAS-2013JP005474

PATIENT
  Sex: Male

DRUGS (5)
  1. TACROLIMUS [Suspect]
     Indication: IMMUNOSUPPRESSANT DRUG THERAPY
     Dosage: 1.5 MG, BID
     Route: 065
  2. TACROLIMUS [Suspect]
     Dosage: 1 MG, BID
     Route: 065
  3. SIROLIMUS [Suspect]
     Indication: IMMUNOSUPPRESSANT DRUG THERAPY
     Dosage: 2 MG, UNKNOWN/D
     Route: 065
  4. SIROLIMUS [Suspect]
     Dosage: 0.75 MG, UNKNOWN/D
     Route: 065
  5. PREDNISOLONE [Suspect]
     Indication: IMMUNOSUPPRESSANT DRUG THERAPY
     Dosage: 10 MG, UNKNOWN/D
     Route: 065

REACTIONS (2)
  - Squamous cell carcinoma [Fatal]
  - Metastatic squamous cell carcinoma [Fatal]
